FAERS Safety Report 21991948 (Version 1)
Quarter: 2023Q1

REPORT INFORMATION
  Report Type: Report from Study
  Country: US (occurrence: US)
  Receive Date: 20230214
  Receipt Date: 20230214
  Transmission Date: 20230418
  Serious: No
  Sender: FDA-Public Use
  Company Number: US-LUNDBECK-DKLU3057822

PATIENT
  Age: 38 Year

DRUGS (3)
  1. VYEPTI [Suspect]
     Active Substance: EPTINEZUMAB-JJMR
     Indication: Migraine
     Route: 041
     Dates: start: 20221209
  2. BOTOX [Concomitant]
     Active Substance: ONABOTULINUMTOXINA
     Indication: Product used for unknown indication
     Route: 065
  3. IRON [Concomitant]
     Active Substance: IRON
     Indication: Iron deficiency
     Route: 041

REACTIONS (4)
  - Migraine [Unknown]
  - Sinus congestion [Recovered/Resolved]
  - Dizziness [Not Recovered/Not Resolved]
  - Therapeutic response shortened [Unknown]

NARRATIVE: CASE EVENT DATE: 20230128
